FAERS Safety Report 24278891 (Version 1)
Quarter: 2024Q3

REPORT INFORMATION
  Report Type: Spontaneous
  Country: US (occurrence: None)
  Receive Date: 20240830
  Receipt Date: 20240830
  Transmission Date: 20241016
  Serious: Yes (unspecified)
  Sender: Public
  Company Number: None

PATIENT
  Age: 31 Year
  Sex: Male
  Weight: 87.75 kg

DRUGS (5)
  1. SINGULAIR [Suspect]
     Active Substance: MONTELUKAST SODIUM
     Indication: Seasonal allergy
     Dates: start: 20240501, end: 20240830
  2. ADDERALL [Concomitant]
     Active Substance: AMPHETAMINE ASPARTATE\AMPHETAMINE SULFATE\DEXTROAMPHETAMINE SACCHARATE\DEXTROAMPHETAMINE SULFATE
  3. VITAMINS [Concomitant]
     Active Substance: VITAMINS
  4. CELEBREX [Concomitant]
     Active Substance: CELECOXIB
  5. Robaxin Flexaril [Concomitant]

REACTIONS (7)
  - Mood swings [None]
  - Condition aggravated [None]
  - Aggression [None]
  - Anger [None]
  - Affect lability [None]
  - Crying [None]
  - Depression [None]

NARRATIVE: CASE EVENT DATE: 20240829
